FAERS Safety Report 5254404-8 (Version None)
Quarter: 2007Q1

REPORT INFORMATION
  Report Type: 
  Country: None (occurrence: None)
  Receive Date: 20070302
  Receipt Date: 20070221
  Transmission Date: 20070707
  Serious: Yes (Other)
  Sender: FDA-Public Use
  Company Number: US-ROCHE-483727

PATIENT
  Sex: Female

DRUGS (1)
  1. XELODA [Suspect]
     Route: 065
     Dates: end: 20061215

REACTIONS (2)
  - METASTASES TO CENTRAL NERVOUS SYSTEM [None]
  - METASTASES TO SPINE [None]
